FAERS Safety Report 4708340-3 (Version None)
Quarter: 2005Q3

REPORT INFORMATION
  Report Type: 
  Country: None (occurrence: None)
  Receive Date: 20050705
  Receipt Date: 20050705
  Transmission Date: 20060218
  Serious: Yes (Hospitalization)
  Sender: FDA-Public Use
  Company Number: None

PATIENT
  Age: 11 Day
  Sex: Male
  Weight: 3.3 kg

DRUGS (2)
  1. ACETAMINOPHEN [Suspect]
     Indication: CIRCUMCISION
     Dosage: 1.6CC EVERY 6 HRS ORAL
     Route: 048
     Dates: start: 20050630, end: 20050701
  2. ACETAMINOPHEN [Suspect]
     Indication: PROCEDURAL PAIN
     Dosage: 1.6CC EVERY 6 HRS ORAL
     Route: 048
     Dates: start: 20050630, end: 20050701

REACTIONS (6)
  - DRUG LEVEL INCREASED [None]
  - INCORRECT DOSE ADMINISTERED [None]
  - NAUSEA [None]
  - OVERDOSE [None]
  - PHARMACEUTICAL PRODUCT COMPLAINT [None]
  - VOMITING [None]
